FAERS Safety Report 12857458 (Version 5)
Quarter: 2017Q1

REPORT INFORMATION
  Report Type: Spontaneous
  Country: CA (occurrence: CA)
  Receive Date: 20161018
  Receipt Date: 20170103
  Transmission Date: 20170428
  Serious: Yes (Other)
  Sender: FDA-Public Use
  Company Number: CA-PFIZER INC-2016481776

PATIENT
  Age: 54 Year
  Sex: Female
  Weight: 72.56 kg

DRUGS (8)
  1. OLANZAPINE. [Concomitant]
     Active Substance: OLANZAPINE
     Dosage: 5 MG, DAILY
     Route: 048
  2. ZOPICLONE [Concomitant]
     Active Substance: ZOPICLONE
     Dosage: 75 MG, DAILY AT BED TIME
     Route: 048
  3. LEFLUNOMIDE. [Concomitant]
     Active Substance: LEFLUNOMIDE
  4. VALSARTAN. [Concomitant]
     Active Substance: VALSARTAN
     Indication: HYPERTENSION
     Dosage: 160 MG, DAILY
     Route: 048
  5. ELTROXIN [Concomitant]
     Active Substance: LEVOTHYROXINE
     Dosage: 50 MCG, DAILY
     Route: 048
  6. PREVACID [Concomitant]
     Active Substance: LANSOPRAZOLE
     Dosage: 30 MG, DAILY
     Route: 048
  7. BUPROPION. [Concomitant]
     Active Substance: BUPROPION
     Dosage: 150 MG, DAILY
     Route: 048
  8. XELJANZ [Suspect]
     Active Substance: TOFACITINIB CITRATE
     Indication: RHEUMATOID ARTHRITIS
     Dosage: 5 MG, 2X/DAY
     Route: 048
     Dates: start: 20160816, end: 201612

REACTIONS (5)
  - Nasopharyngitis [Recovered/Resolved]
  - Nephrolithiasis [Not Recovered/Not Resolved]
  - Lower respiratory tract infection [Recovered/Resolved]
  - Renal neoplasm [Unknown]
  - Blood test abnormal [Unknown]

NARRATIVE: CASE EVENT DATE: 201609
